FAERS Safety Report 4603190-0 (Version None)
Quarter: 2005Q1

REPORT INFORMATION
  Report Type: 
  Country: None (occurrence: None)
  Receive Date: 20050307
  Receipt Date: 20050224
  Transmission Date: 20050727
  Serious: Yes (Hospitalization)
  Sender: FDA-Public Use
  Company Number: 2005-01-0816

PATIENT
  Age: 65 Year
  Sex: Female
  Weight: 52 kg

DRUGS (6)
  1. TEMODAL [Suspect]
     Dosage: 100 MG ORAL
     Route: 048
     Dates: start: 20041028, end: 20041212
  2. ATORVASTATIN CALCIUM [Suspect]
     Route: 048
     Dates: end: 20041212
  3. RADIATION THERAPY [Concomitant]
  4. ANTICONVULSANTS (NOS) [Concomitant]
  5. ZYRTEC [Concomitant]
  6. VASOBRAL [Concomitant]

REACTIONS (2)
  - CHOLESTASIS [None]
  - CYTOLYTIC HEPATITIS [None]
